FAERS Safety Report 8951585 (Version 1)
Quarter: 2012Q4

REPORT INFORMATION
  Report Type: Report from Study
  Country: CA (occurrence: CA)
  Receive Date: 20121204
  Receipt Date: 20121204
  Transmission Date: 20130627
  Serious: Yes (Other)
  Sender: FDA-Public Use
  Company Number: CA-ROCHE-1163872

PATIENT
  Sex: Female
  Weight: 57 kg

DRUGS (3)
  1. OMALIZUMAB [Suspect]
     Indication: ASTHMA
     Route: 058
     Dates: start: 20061024
  2. PREDNISONE [Concomitant]
  3. ADVAIR [Concomitant]
     Route: 065

REACTIONS (6)
  - Hypersensitivity [Unknown]
  - Vomiting [Unknown]
  - Gastroenteritis viral [Unknown]
  - Sinus congestion [Unknown]
  - Nausea [Unknown]
  - Influenza like illness [Unknown]
